FAERS Safety Report 10196257 (Version 1)
Quarter: 2014Q2

REPORT INFORMATION
  Report Type: Spontaneous
  Country: US (occurrence: None)
  Receive Date: 20140523
  Receipt Date: 20140523
  Transmission Date: 20141212
  Serious: Yes (Hospitalization)
  Sender: FDA-Public Use
  Company Number: None

PATIENT
  Age: 58 Year
  Sex: Male
  Weight: 113 kg

DRUGS (9)
  1. ROSUVASTATIN [Suspect]
     Indication: HYPERLIPIDAEMIA
     Route: 048
  2. OXYCODONE/APAP [Concomitant]
  3. TIZANIDINE [Concomitant]
  4. TRAZODONE [Concomitant]
  5. ONDANSETRON [Concomitant]
  6. CITALOPRAM [Concomitant]
  7. LOPERAMIDE [Concomitant]
  8. GABAPENTIN [Concomitant]
  9. LISINOPRIL [Concomitant]

REACTIONS (2)
  - Rhabdomyolysis [None]
  - Renal failure acute [None]
